FAERS Safety Report 13472069 (Version 1)
Quarter: 2017Q2

REPORT INFORMATION
  Report Type: Other
  Country: JP (occurrence: JP)
  Receive Date: 20170424
  Receipt Date: 20170424
  Transmission Date: 20170830
  Serious: Yes (Other)
  Sender: FDA-Public Use
  Company Number: JP-ACTELION-A-CH2017-152712

PATIENT
  Sex: Female
  Weight: 1.97 kg

DRUGS (15)
  1. EPOPROSTENOL SODIUM. [Suspect]
     Active Substance: EPOPROSTENOL SODIUM
     Indication: PERSISTENT FOETAL CIRCULATION
     Dosage: 10 NG/KG, PER MIN
     Route: 042
  2. SILDENAFIL. [Concomitant]
     Active Substance: SILDENAFIL
     Dosage: 3 MG/KG, QD
     Route: 065
  3. DOPAMINE [Concomitant]
     Active Substance: DOPAMINE\DOPAMINE HYDROCHLORIDE
  4. SILDENAFIL. [Concomitant]
     Active Substance: SILDENAFIL
     Dosage: 3 MG/KG, QD
     Route: 065
  5. FENTANYL. [Concomitant]
     Active Substance: FENTANYL
     Dosage: 1.5 ?G/KG, Q1HOUR
  6. SILDENAFIL. [Concomitant]
     Active Substance: SILDENAFIL
     Dosage: 2 MG/KG, QD
     Route: 065
  7. SILDENAFIL. [Concomitant]
     Active Substance: SILDENAFIL
     Dosage: 1 MG/KG, QD
     Route: 065
  8. NITRIC OXIDE. [Concomitant]
     Active Substance: NITRIC OXIDE
  9. DOBUTAMINE [Concomitant]
     Active Substance: DOBUTAMINE\DOBUTAMINE HYDROCHLORIDE
  10. MILRINONE [Concomitant]
     Active Substance: MILRINONE
     Dosage: 0.5 UNK, UNK
  11. SILDENAFIL. [Concomitant]
     Active Substance: SILDENAFIL
     Dosage: 3 MG/KG, QD
     Route: 065
  12. SILDENAFIL. [Concomitant]
     Active Substance: SILDENAFIL
     Dosage: 2 MG/KG, QD
     Route: 065
  13. SILDENAFIL. [Concomitant]
     Active Substance: SILDENAFIL
     Dosage: 4 MG/KG, QD
     Route: 065
  14. SILDENAFIL. [Concomitant]
     Active Substance: SILDENAFIL
     Dosage: 1 MG/KG, QD
     Route: 065
  15. SILDENAFIL. [Concomitant]
     Active Substance: SILDENAFIL
     Dosage: 4 MG/KG, QD
     Route: 065

REACTIONS (6)
  - Hyperoxia [Unknown]
  - Transfusion [Unknown]
  - Pulmonary haemorrhage [Unknown]
  - Patent ductus arteriosus repair [Unknown]
  - Retinopathy of prematurity [Unknown]
  - Hypoxia [Unknown]
